FAERS Safety Report 8567650-2 (Version None)
Quarter: 2012Q3

REPORT INFORMATION
  Report Type: 
  Country: None (occurrence: None)
  Receive Date: 20120803
  Receipt Date: 20120724
  Transmission Date: 20120928
  Serious: Yes (Death)
  Sender: FDA-Public Use
  Company Number: JP-009507513-1207JPN004992

PATIENT

DRUGS (3)
  1. NONSTEROIDAL ANTI-INFLAMMATORY DRUG (UNSPECIFIED) [Concomitant]
  2. PERIPHERAL OPIOID RECEPTOR ANTAGONIST (UNSPECIFIED) [Concomitant]
  3. DEXAMETHASONE [Suspect]
     Indication: DYSPNOEA
     Dosage: 2 MG, QD
     Route: 065

REACTIONS (1)
  - PNEUMOCYSTIS JIROVECI PNEUMONIA [None]
